FAERS Safety Report 13881939 (Version 1)
Quarter: 2017Q3

REPORT INFORMATION
  Report Type: Spontaneous
  Country: TR (occurrence: TR)
  Receive Date: 20170818
  Receipt Date: 20170818
  Transmission Date: 20171127
  Serious: Yes (Death, Other)
  Sender: FDA-Public Use
  Company Number: PHHY2017TR120118

PATIENT
  Age: 48 Year
  Sex: Male

DRUGS (4)
  1. ETOPOSIDE. [Suspect]
     Active Substance: ETOPOSIDE
     Indication: HISTIOCYTIC SARCOMA
     Dosage: UNK
     Route: 065
  2. IFOSFAMIDE. [Suspect]
     Active Substance: IFOSFAMIDE
     Indication: HISTIOCYTIC SARCOMA
     Dosage: UNK, CYCLIC
     Route: 065
  3. MESNA. [Suspect]
     Active Substance: MESNA
     Indication: HISTIOCYTIC SARCOMA
     Route: 065
  4. CARBOPLATIN. [Suspect]
     Active Substance: CARBOPLATIN
     Indication: HISTIOCYTIC SARCOMA
     Route: 065

REACTIONS (6)
  - Pleural effusion [Unknown]
  - Metastases to bone [Unknown]
  - Histiocytic sarcoma [Fatal]
  - Splenomegaly [Unknown]
  - Ascites [Unknown]
  - Malignant neoplasm progression [Fatal]
